FAERS Safety Report 9750668 (Version 2)
Quarter: 2013Q4

REPORT INFORMATION
  Report Type: Spontaneous
  Country: US (occurrence: US)
  Receive Date: 20131212
  Receipt Date: 20131224
  Transmission Date: 20140711
  Serious: No
  Sender: FDA-Public Use
  Company Number: US-BIOGENIDEC-2013BI099030

PATIENT
  Age: 51 Year
  Sex: Female

DRUGS (6)
  1. TECFIDERA [Suspect]
     Indication: MULTIPLE SCLEROSIS
  2. TECFIDERA [Suspect]
     Indication: MULTIPLE SCLEROSIS
  3. TECFIDERA [Suspect]
     Indication: MULTIPLE SCLEROSIS
     Route: 048
     Dates: start: 201308, end: 201310
  4. TECFIDERA [Suspect]
     Indication: MULTIPLE SCLEROSIS
     Route: 048
     Dates: start: 20130913, end: 20131003
  5. GABAPENTIN [Concomitant]
  6. ADDERALL [Concomitant]

REACTIONS (6)
  - Urticaria [Recovered/Resolved]
  - Hypersensitivity [Unknown]
  - Drug hypersensitivity [Unknown]
  - Blister [Recovered/Resolved]
  - Hallucination [Recovered/Resolved]
  - Contrast media allergy [Unknown]
